FAERS Safety Report 17086860 (Version 3)
Quarter: 2020Q1

REPORT INFORMATION
  Report Type: Spontaneous
  Country: US (occurrence: US)
  Receive Date: 20191128
  Receipt Date: 20200116
  Transmission Date: 20200409
  Serious: Yes (Hospitalization, Other)
  Sender: FDA-Public Use
  Company Number: US-DRREDDYS-USA/USA/19/0116406

PATIENT
  Age: 34 Year
  Sex: Male

DRUGS (3)
  1. LITHIUM. [Concomitant]
     Active Substance: LITHIUM
     Indication: SCHIZOAFFECTIVE DISORDER BIPOLAR TYPE
     Dosage: IN MARCH 2012, THE PATIENT WAS ADMITTED TO FOR PSYCHOSIS. AT THIS TIME, THE PATIENT STATED HE WAS TA
     Dates: start: 201111
  2. FLUPHENAZINE [Concomitant]
     Active Substance: FLUPHENAZINE
     Indication: SCHIZOAFFECTIVE DISORDER BIPOLAR TYPE
     Dosage: IN MARCH 2012, THE PATIENT WAS ADMITTED TO FOR PSYCHOSIS. AT THIS TIME, THE PATIENT STATED HE WAS TA
     Route: 048
     Dates: start: 201111
  3. QUETIAPINE FUMARATE TABLETS [Suspect]
     Active Substance: QUETIAPINE FUMARATE
     Indication: SCHIZOAFFECTIVE DISORDER BIPOLAR TYPE
     Dosage: IN MARCH 2012, THE PATIENT WAS ADMITTED TO FOR PSYCHOSIS. AT THIS TIME, THE PATIENT STATED HE WAS TA
     Route: 065
     Dates: start: 201111

REACTIONS (2)
  - Fibrosis [Recovered/Resolved]
  - Priapism [Recovered/Resolved]

NARRATIVE: CASE EVENT DATE: 201203
